FAERS Safety Report 4920746-6 (Version None)
Quarter: 2006Q1

REPORT INFORMATION
  Report Type: 
  Country: None (occurrence: None)
  Receive Date: 20060223
  Receipt Date: 20060214
  Transmission Date: 20060701
  Serious: Yes (Other)
  Sender: FDA-Public Use
  Company Number: BR-BOEHRINGER INGELHEIM PHARMACEUTICALS, INC.-2006-DE-00833GD

PATIENT
  Age: 27 Year
  Sex: Female

DRUGS (4)
  1. NEVIRAPINE [Suspect]
     Indication: HIV INFECTION CDC CATEGORY B2
     Route: 048
  2. ZIDOVUDINE [Suspect]
     Indication: HIV INFECTION CDC CATEGORY B2
  3. LAMIVUDINE [Suspect]
     Indication: HIV INFECTION CDC CATEGORY B2
  4. MEDICINALPRODUCT NOT SPECIFIED BY SENDER [Concomitant]

REACTIONS (4)
  - DRUG EXPOSURE DURING PREGNANCY [None]
  - DRUG TOXICITY [None]
  - RASH [None]
  - STILLBIRTH [None]
